FAERS Safety Report 4951153-8 (Version None)
Quarter: 2006Q1

REPORT INFORMATION
  Report Type: 
  Country: None (occurrence: None)
  Receive Date: 20060315
  Receipt Date: 20060224
  Transmission Date: 20060701
  Serious: Yes (Other)
  Sender: FDA-Public Use
  Company Number: ES200511001303

PATIENT
  Age: 54 Year
  Sex: Female

DRUGS (2)
  1. RALOXIFENE HCL [Suspect]
     Dosage: 60 MG DAILY (1/D) ORAL
     Route: 048
     Dates: start: 20050801, end: 20051001
  2. SOY ISOFLAVONES [Concomitant]

REACTIONS (2)
  - PHLEBITIS [None]
  - SENSATION OF HEAVINESS [None]
